FAERS Safety Report 23382164 (Version 2)
Quarter: 2024Q1

REPORT INFORMATION
  Report Type: Spontaneous
  Country: US (occurrence: US)
  Receive Date: 20240109
  Receipt Date: 20240116
  Transmission Date: 20240410
  Serious: Yes (Death, Hospitalization, Other)
  Sender: FDA-Public Use
  Company Number: US-PFIZER INC-PV202400000564

PATIENT
  Age: 82 Year
  Sex: Female

DRUGS (4)
  1. METHYLPREDNISOLONE ACETATE [Suspect]
     Active Substance: METHYLPREDNISOLONE ACETATE
     Indication: Anti-glomerular basement membrane disease
     Dosage: 1000 MG, DAY 2-4 (3 DAYS)
  2. RITUXIMAB [Suspect]
     Active Substance: RITUXIMAB
     Indication: Anti-glomerular basement membrane disease
     Dosage: 375 MG/M2 (ON HOSPITAL DAY 15)
  3. PREDNISONE [Suspect]
     Active Substance: PREDNISONE
     Indication: Anti-glomerular basement membrane disease
     Dosage: 75 MG, (ON HOSPITAL DAY 5-20)
  4. CYCLOPHOSPHAMIDE [Suspect]
     Active Substance: CYCLOPHOSPHAMIDE
     Indication: Anti-glomerular basement membrane disease
     Dosage: 1 MG/KG, DAILY, (ON HOSPITAL DAY 6-20)

REACTIONS (5)
  - Adenovirus infection [Fatal]
  - Pneumonia necrotising [Fatal]
  - Hepatic necrosis [Fatal]
  - Multiple organ dysfunction syndrome [Fatal]
  - Off label use [Unknown]
